FAERS Safety Report 9167997 (Version 2)
Quarter: 2013Q1

REPORT INFORMATION
  Report Type: Spontaneous
  Country: US (occurrence: None)
  Receive Date: 20130227
  Receipt Date: 20130304
  Transmission Date: 20140127
  Serious: Yes (Hospitalization, Other)
  Sender: FDA-Public Use
  Company Number: 2013034783

PATIENT
  Age: 27 Year
  Sex: Male

DRUGS (1)
  1. HIZENTRA (IMMUNOGLOBULIN HUMAN NORMAL) [Suspect]
     Indication: IMMUNODEFICIENCY COMMON VARIABLE
     Dosage: 1X/WEEK
     Route: 058
     Dates: start: 20130211, end: 20130211

REACTIONS (3)
  - Grand mal convulsion [None]
  - Idiopathic thrombocytopenic purpura [None]
  - Meningitis viral [None]
